FAERS Safety Report 7093286-9 (Version None)
Quarter: 2010Q4

REPORT INFORMATION
  Report Type: 
  Country: None (occurrence: None)
  Receive Date: 20101110
  Receipt Date: 20091229
  Transmission Date: 20110411
  Serious: Yes (Other)
  Sender: FDA-Public Use
  Company Number: US-PFIZER INC-2009298001

PATIENT
  Sex: Female
  Weight: 117 kg

DRUGS (3)
  1. BEXTRA [Suspect]
     Indication: PAIN
  2. VICODIN [Concomitant]
     Indication: PAIN
  3. HYDROCHLOROTHIAZIDE [Concomitant]

REACTIONS (2)
  - CARDIAC FAILURE CONGESTIVE [None]
  - RASH [None]
